FAERS Safety Report 5800283-7 (Version None)
Quarter: 2008Q3

REPORT INFORMATION
  Report Type: 
  Country: None (occurrence: None)
  Receive Date: 20080703
  Receipt Date: 20080630
  Transmission Date: 20090109
  Serious: Yes (Death, Hospitalization, Other)
  Sender: FDA-Public Use
  Company Number: PHEH2007US13267

PATIENT
  Sex: Female
  Weight: 67 kg

DRUGS (4)
  1. EXJADE [Suspect]
     Indication: IRON METABOLISM DISORDER
     Dosage: 750 MG, QD
     Route: 048
     Dates: start: 20070427, end: 20070925
  2. LACTULOSE [Concomitant]
     Dosage: 20 G, TID
     Route: 048
  3. MORPHINE [Concomitant]
     Dosage: 5 MG EVERY 2 HOURS AS NEEDED
     Route: 048
  4. PREDNISONE 50MG TAB [Concomitant]
     Dosage: 10 MG, QD

REACTIONS (13)
  - AMMONIA ABNORMAL [None]
  - ENTEROCOCCAL INFECTION [None]
  - EPISTAXIS [None]
  - HEADACHE [None]
  - HEPATIC FUNCTION ABNORMAL [None]
  - HYPERCALCAEMIA [None]
  - INTERNATIONAL NORMALISED RATIO INCREASED [None]
  - LIVER DISORDER [None]
  - LIVER FUNCTION TEST ABNORMAL [None]
  - MENTAL STATUS CHANGES [None]
  - PLATELET COUNT DECREASED [None]
  - URINARY TRACT INFECTION ENTEROCOCCAL [None]
  - YELLOW SKIN [None]
